FAERS Safety Report 5607801-2 (Version None)
Quarter: 2008Q1

REPORT INFORMATION
  Report Type: 
  Country: None (occurrence: None)
  Receive Date: 20080128
  Receipt Date: 20080128
  Transmission Date: 20080703
  Serious: Yes (Other)
  Sender: FDA-Public Use
  Company Number: None

PATIENT
  Age: 27 Year
  Sex: Male
  Weight: 70.3075 kg

DRUGS (1)
  1. MYOBLOC [Suspect]
     Indication: HYPERHIDROSIS
     Dates: start: 20071215, end: 20080120

REACTIONS (8)
  - BLINDNESS [None]
  - DRY MOUTH [None]
  - DRY SKIN [None]
  - DYSPEPSIA [None]
  - DYSPHAGIA [None]
  - LIP DRY [None]
  - MALAISE [None]
  - VISION BLURRED [None]
